FAERS Safety Report 5165836-0 (Version None)
Quarter: 2006Q4

REPORT INFORMATION
  Report Type: 
  Country: None (occurrence: None)
  Receive Date: 20061128
  Receipt Date: 20061114
  Transmission Date: 20070319
  Serious: Yes (Hospitalization)
  Sender: FDA-Public Use
  Company Number: 2006US002390

PATIENT
  Age: 4 Year
  Sex: Male
  Weight: 15 kg

DRUGS (1)
  1. PROGRAF [Suspect]
     Indication: PROPHYLAXIS AGAINST TRANSPLANT REJECTION
     Dosage: 4 MG, UID/QD, ORAL
     Route: 048
     Dates: start: 20061010, end: 20061022

REACTIONS (3)
  - CEREBRAL THROMBOSIS [None]
  - GRAND MAL CONVULSION [None]
  - ISCHAEMIC STROKE [None]
